FAERS Safety Report 4498874-1 (Version None)
Quarter: 2004Q4

REPORT INFORMATION
  Report Type: 
  Country: None (occurrence: None)
  Receive Date: 20041108
  Receipt Date: 20041025
  Transmission Date: 20050328
  Serious: Yes (Other)
  Sender: FDA-Public Use
  Company Number: 25504

PATIENT
  Age: 55 Year
  Sex: Female

DRUGS (2)
  1. ALDARA [Suspect]
     Indication: CONDYLOMA ACUMINATUM
     Route: 061
     Dates: start: 20040929, end: 20041001
  2. LOSEC [Concomitant]

REACTIONS (6)
  - ANOREXIA [None]
  - HYPERAESTHESIA [None]
  - INFLUENZA LIKE ILLNESS [None]
  - MYALGIA [None]
  - NAUSEA [None]
  - OCULAR DISCOMFORT [None]
